FAERS Safety Report 7294858-9 (Version None)
Quarter: 2011Q1

REPORT INFORMATION
  Report Type: 
  Country: None (occurrence: None)
  Receive Date: 20110211
  Receipt Date: 20110211
  Transmission Date: 20110831
  Serious: Yes (Life-Threatening, Hospitalization, Other)
  Sender: FDA-Public Use
  Company Number: None

PATIENT
  Sex: Female
  Weight: 63.5036 kg

DRUGS (1)
  1. TERBINAFINE 250 MG'S, INVAGEN [Suspect]
     Indication: RASH
     Dosage: 1 DAILY 30 DAYS

REACTIONS (1)
  - STEVENS-JOHNSON SYNDROME [None]
